FAERS Safety Report 4791149-2 (Version None)
Quarter: 2005Q4

REPORT INFORMATION
  Report Type: 
  Country: None (occurrence: None)
  Receive Date: 20051005
  Receipt Date: 20050919
  Transmission Date: 20060501
  Serious: Yes (Other)
  Sender: FDA-Public Use
  Company Number: 12180

PATIENT
  Age: 48 Year
  Sex: Male

DRUGS (2)
  1. DOPAMINE [Suspect]
     Dosage: 15
  2. MEDROL [Suspect]
     Dosage: 500 MG

REACTIONS (1)
  - ARTERIOSPASM CORONARY [None]
